FAERS Safety Report 8886956 (Version 2)
Quarter: 2012Q4

REPORT INFORMATION
  Report Type: 
  Country: US (occurrence: US)
  Receive Date: 20121105
  Receipt Date: 20121213
  Transmission Date: 20130627
  Serious: Yes (Hospitalization, Other)
  Sender: FDA-Public Use
  Company Number: US-BAYER-2012-114972

PATIENT
  Age: 54 Year
  Sex: Female
  Weight: 77.1 kg

DRUGS (21)
  1. BETASERON [Suspect]
     Indication: MS
     Dosage: 1 ml QOD
     Route: 058
     Dates: start: 200802, end: 20121029
  2. METOPROLOL RETARD [Concomitant]
     Indication: BLOOD PRESSURE HIGH
     Dosage: 25 mg, BID
  3. BAYER ASPIRIN REGIMEN ADULT LOW STRENGTH [Concomitant]
     Dosage: 81 mg, UNK
  4. PLAVIX [Concomitant]
     Indication: CORONARY STENT PLACEMENT
     Dosage: 75 mg, QD
     Dates: start: 20121002
  5. CHLORTHALIDONE [Concomitant]
     Indication: DIURETIC THERAPY
     Dosage: 25 mg, UNK
  6. CHLORTHALIDONE [Concomitant]
     Indication: DIURETIC THERAPY
     Dosage: 50 mg, QD
     Dates: start: 201207
  7. BACLOFEN [Concomitant]
     Indication: MS
     Dosage: 10 mg, UNK
  8. BACLOFEN [Concomitant]
     Indication: MS
     Dosage: 20 mg, QD PRN
     Dates: start: 200802
  9. ZETIA [Concomitant]
     Indication: HIGH CHOLESTEROL
     Dosage: 10 mg, QD
     Dates: start: 201103
  10. POTASSIUM CHLORIDE [Concomitant]
     Indication: DIURETIC THERAPY
     Dosage: 10 mEq, QD
     Dates: start: 201207
  11. WELCHOL [Concomitant]
     Indication: HIGH CHOLESTEROL
     Dosage: 6 DF, QD
     Dates: start: 20121029
  12. ALLEGRA [Concomitant]
     Indication: MULTIPLE ALLERGIES
     Dosage: 180 mg, QD PRN
  13. VITAMIN A [Concomitant]
     Indication: VITAMIN D DEFICIENCY
     Dosage: 8000 UNK, QOD
  14. COQ10 [Concomitant]
     Indication: CARDIAC DISORDER PROPHYLAXIS
     Dosage: 30 mg, UNK
     Dates: start: 20110620
  15. CALTRATE WITH VITAMIN D [Concomitant]
  16. DENOSUMAB [Concomitant]
     Indication: OSTEOPOROSIS
     Dosage: 60MG/ML
  17. DENOSUMAB [Concomitant]
     Indication: OSTEOPOROSIS
     Dosage: 20 mg, ONCE every 6 months
  18. MELATONIN [Concomitant]
     Indication: SLEEP DISORDER THERAPY
     Dosage: 10 mg, QD
  19. VITAMIN D [Concomitant]
     Indication: MS
     Dosage: 4000 u, QD
  20. OMEGA-3 [Concomitant]
     Indication: CARDIAC DISORDER PROPHYLAXIS
     Dosage: 1 DF, QD
     Dates: start: 20110620
  21. ADVIL PM [Concomitant]
     Indication: SLEEP DISORDER THERAPY
     Dosage: 2 DF, QD

REACTIONS (3)
  - Myocardial infarction [Recovering/Resolving]
  - Myocardial infarction [Recovering/Resolving]
  - Coronary artery occlusion [Recovering/Resolving]
